FAERS Safety Report 15020548 (Version 1)
Quarter: 2018Q2

REPORT INFORMATION
  Report Type: Report from Study
  Country: IT (occurrence: IT)
  Receive Date: 20180618
  Receipt Date: 20180618
  Transmission Date: 20180711
  Serious: Yes (Death)
  Sender: FDA-Public Use
  Company Number: IT-CONCORDIA PHARMACEUTICALS INC.-E2B_00012576

PATIENT
  Age: 95 Year
  Sex: Female

DRUGS (4)
  1. LANOXIN [Suspect]
     Active Substance: DIGOXIN
     Indication: ATRIAL FIBRILLATION
     Route: 048
  2. LASIX [Concomitant]
     Active Substance: FUROSEMIDE
  3. COUMADIN [Suspect]
     Active Substance: WARFARIN SODIUM
     Indication: THROMBOSIS PROPHYLAXIS
     Route: 048
  4. DELTACORTENE 25 MG COMPRESSE [Concomitant]

REACTIONS (6)
  - Livedo reticularis [Fatal]
  - Tachypnoea [Fatal]
  - Sopor [Fatal]
  - Toxicity to various agents [Fatal]
  - International normalised ratio abnormal [Fatal]
  - Bradyarrhythmia [Fatal]

NARRATIVE: CASE EVENT DATE: 20171223
